FAERS Safety Report 9132570 (Version 1)
Quarter: 2013Q1

REPORT INFORMATION
  Report Type: Report from Study
  Country: MX (occurrence: MX)
  Receive Date: 20130301
  Receipt Date: 20130301
  Transmission Date: 20140127
  Serious: Yes (Life-Threatening, Hospitalization)
  Sender: FDA-Public Use
  Company Number: MX-ROCHE-1193899

PATIENT
  Age: 64 Year
  Sex: Male
  Weight: 54 kg

DRUGS (5)
  1. METHOXY POLYETHYLENE GLYCOL-EPOETIN BETA [Suspect]
     Indication: NEPHROGENIC ANAEMIA
     Dosage: LAST DOSE PRIOR TO SAE : 25/OCT/2012
     Route: 058
     Dates: start: 10120827, end: 20121219
  2. FERROUS FUMARATE [Concomitant]
     Route: 065
     Dates: start: 20120719
  3. FOLIC ACID [Concomitant]
     Route: 065
     Dates: start: 20120719
  4. CAPTOPRIL [Concomitant]
     Route: 065
     Dates: start: 20120719
  5. PIOGLITAZONE [Concomitant]
     Route: 065
     Dates: start: 20120719

REACTIONS (1)
  - Cerebrovascular disorder [Not Recovered/Not Resolved]
